FAERS Safety Report 4388972-5 (Version None)
Quarter: 2004Q2

REPORT INFORMATION
  Report Type: 
  Country: None (occurrence: None)
  Receive Date: 20040628
  Receipt Date: 20040602
  Transmission Date: 20050107
  Serious: Yes (Other)
  Sender: FDA-Public Use
  Company Number: 24028

PATIENT
  Age: 52 Year
  Sex: Female

DRUGS (1)
  1. METRONIDAZOLE [Suspect]
     Indication: VAGINAL DISCHARGE
     Dosage: ( 1 IN 1 DAY(S))
     Route: 048
     Dates: start: 20040312, end: 20040507

REACTIONS (1)
  - ARTHRALGIA [None]
